FAERS Safety Report 9189490 (Version 2)
Quarter: 2013Q2

REPORT INFORMATION
  Report Type: Report from Study
  Country: JP (occurrence: JP)
  Receive Date: 20130326
  Receipt Date: 20130502
  Transmission Date: 20140414
  Serious: Yes (Other)
  Sender: FDA-Public Use
  Company Number: JP-009507513-2012SP025332

PATIENT
  Age: 60 Year
  Sex: Male
  Weight: 72 kg

DRUGS (17)
  1. PEGINTRON [Suspect]
     Indication: CHRONIC HEPATITIS C
     Dosage: 1.4 MICROGRAM PER KILOGRAM, QW
     Route: 058
     Dates: start: 20120302, end: 20120323
  2. PEGINTRON [Suspect]
     Dosage: 60 MICROGRAM, QW
     Route: 058
     Dates: start: 20120329, end: 20120329
  3. PEGINTRON [Suspect]
     Dosage: 100 MICROGRAM, QW
     Route: 058
     Dates: start: 20120407, end: 20120412
  4. REBETOL [Suspect]
     Indication: CHRONIC HEPATITIS C
     Dosage: 800 MG, QD
     Route: 048
     Dates: start: 20120302, end: 20120325
  5. REBETOL [Suspect]
     Dosage: 600 MG, QD
     Route: 048
     Dates: start: 20120326, end: 20120328
  6. REBETOL [Suspect]
     Dosage: 600MG/ 2 DAYS
     Route: 048
     Dates: start: 20120329, end: 20120331
  7. REBETOL [Suspect]
     Dosage: 400 MG/2 DAYS
     Route: 048
     Dates: start: 20120330, end: 20120401
  8. REBETOL [Suspect]
     Dosage: 400 MG, QD
     Route: 048
     Dates: start: 20120402, end: 20120410
  9. REBETOL [Suspect]
     Dosage: 200 MG, QD
     Route: 048
     Dates: start: 20120411, end: 20120412
  10. TELAVIC [Suspect]
     Indication: CHRONIC HEPATITIS C
     Dosage: 2250 MG, QD
     Route: 048
     Dates: start: 20120302, end: 20120410
  11. TELAVIC [Suspect]
     Dosage: 1500 MG, QD
     Route: 048
     Dates: start: 20120411, end: 20120412
  12. JANUVIA TABLETS 50MG [Concomitant]
     Indication: DIABETES MELLITUS
     Dosage: 50 MG, QD, FORMULATION: POR
     Route: 048
     Dates: end: 20120414
  13. ALLEGRA [Concomitant]
     Indication: PROPHYLAXIS
     Dosage: FORMULATION: POR
     Route: 048
     Dates: start: 20120302, end: 20120412
  14. GASMOTIN [Concomitant]
     Indication: PROPHYLAXIS
     Dosage: 15 MG, QD, POR
     Route: 048
     Dates: start: 20120302, end: 20120412
  15. BENIDIPINE HYDROCHLORIDE [Concomitant]
     Indication: HYPERTENSION
     Dosage: 4 MG, QD, POR
     Route: 048
     Dates: start: 20120302
  16. RENIVEZE [Concomitant]
     Indication: HYPERTENSION
     Dosage: 5 MG, QD, POR
     Route: 048
     Dates: start: 20120302
  17. VOGLIBOSE [Concomitant]
     Indication: DIABETES MELLITUS
     Dosage: 0.6 MG, QD, POR
     Route: 048
     Dates: start: 20120302, end: 20120414

REACTIONS (4)
  - Hyperuricaemia [Recovered/Resolved]
  - Blood glucose increased [Recovering/Resolving]
  - Retinopathy [Recovering/Resolving]
  - Haemoglobin decreased [Recovered/Resolved]
